FAERS Safety Report 6880010-5 (Version None)
Quarter: 2010Q3

REPORT INFORMATION
  Report Type: 
  Country: None (occurrence: None)
  Receive Date: 20100728
  Receipt Date: 20100720
  Transmission Date: 20110219
  Serious: Yes (Hospitalization)
  Sender: FDA-Public Use
  Company Number: PHHY2010DE47837

PATIENT
  Age: 15 Year
  Sex: Female

DRUGS (1)
  1. RITALIN LA [Suspect]
     Dosage: 40 MG DAILY
     Route: 048
     Dates: start: 20080101

REACTIONS (2)
  - BLOOD CREATINE PHOSPHOKINASE INCREASED [None]
  - DYSPNOEA [None]
